FAERS Safety Report 17669265 (Version 1)
Quarter: 2020Q2

REPORT INFORMATION
  Report Type: Spontaneous
  Country: US (occurrence: US)
  Receive Date: 20200415
  Receipt Date: 20200415
  Transmission Date: 20200713
  Serious: No
  Sender: FDA-Public Use
  Company Number: US-EMCURE PHARMACEUTICALS LTD-2020-EPL-000399

PATIENT
  Age: 30 Year
  Sex: Female

DRUGS (3)
  1. DOXYCYCLINE. [Suspect]
     Active Substance: DOXYCYCLINE
     Indication: CORONAVIRUS INFECTION
     Dosage: 100 MILLIGRAM, 1 DOSE PER 8HRS, I63 DEBOSSED ON ONE SIDE
     Route: 048
  2. DOXYCYCLINE. [Suspect]
     Active Substance: DOXYCYCLINE
     Indication: SKIN INFECTION
  3. TYLENOL [Concomitant]
     Active Substance: ACETAMINOPHEN
     Indication: PYREXIA

REACTIONS (2)
  - Therapeutic response unexpected [Unknown]
  - Drug effective for unapproved indication [Unknown]
